FAERS Safety Report 17581123 (Version 2)
Quarter: 2020Q1

REPORT INFORMATION
  Report Type: Spontaneous
  Country: JP (occurrence: JP)
  Receive Date: 20200325
  Receipt Date: 20200326
  Transmission Date: 20200409
  Serious: Yes (Other)
  Sender: FDA-Public Use
  Company Number: JP-PFIZER INC-2020125100

PATIENT

DRUGS (1)
  1. XELJANZ [Suspect]
     Active Substance: TOFACITINIB CITRATE
     Indication: COLITIS ULCERATIVE
     Dosage: 20 MG (4 TABLETS), DAILY
     Route: 048
     Dates: start: 20200311

REACTIONS (3)
  - Abdominal pain [Recovering/Resolving]
  - Melaena [Unknown]
  - Defaecation disorder [Unknown]

NARRATIVE: CASE EVENT DATE: 20200324
